FAERS Safety Report 15261397 (Version 1)
Quarter: 2018Q3

REPORT INFORMATION
  Report Type: Spontaneous
  Country: US (occurrence: US)
  Receive Date: 20180809
  Receipt Date: 20180809
  Transmission Date: 20181010
  Serious: Yes (Other)
  Sender: FDA-Public Use
  Company Number: US-GLAXOSMITHKLINE-US2018139471

PATIENT
  Sex: Female

DRUGS (1)
  1. BENLYSTA [Suspect]
     Active Substance: BELIMUMAB
     Indication: PRODUCT USED FOR UNKNOWN INDICATION
     Dosage: UNK UNK, U

REACTIONS (9)
  - Pharyngitis [Unknown]
  - Drug dose omission [Unknown]
  - Mental impairment [Unknown]
  - Ear infection [Unknown]
  - Decreased immune responsiveness [Unknown]
  - Eye infection [Unknown]
  - Immune system disorder [Unknown]
  - Confusional state [Unknown]
  - Amnesia [Unknown]
